FAERS Safety Report 4284149-2 (Version None)
Quarter: 2004Q1

REPORT INFORMATION
  Report Type: 
  Country: None (occurrence: None)
  Receive Date: 20040203
  Receipt Date: 20031027
  Transmission Date: 20041129
  Serious: Yes (Hospitalization)
  Sender: FDA-Public Use
  Company Number: JP-GLAXOSMITHKLINE-B0312993C

PATIENT
  Age: 30 Year
  Sex: Female

DRUGS (6)
  1. EPOPROSTENOL [Suspect]
     Indication: PULMONARY HYPERTENSION
     Route: 042
     Dates: start: 20000412
  2. WARFARIN SODIUM [Concomitant]
     Route: 048
  3. SPIRONOLACTONE [Concomitant]
     Route: 048
  4. PREDNISOLONE [Concomitant]
  5. TORSEMIDE [Concomitant]
  6. POTASSIUM [Concomitant]

REACTIONS (3)
  - ALANINE AMINOTRANSFERASE INCREASED [None]
  - CATHETER RELATED INFECTION [None]
  - WHITE BLOOD CELL COUNT INCREASED [None]
